FAERS Safety Report 24062887 (Version 9)
Quarter: 2024Q4

REPORT INFORMATION
  Report Type: Report from Study
  Country: KR (occurrence: KR)
  Receive Date: 20240709
  Receipt Date: 20241105
  Transmission Date: 20250115
  Serious: Yes (Hospitalization, Other)
  Sender: ABBVIE
  Company Number: KR-ABBVIE-5829138

PATIENT
  Age: 70 Year
  Sex: Female
  Weight: 45 kg

DRUGS (25)
  1. VENCLEXTA [Suspect]
     Active Substance: VENETOCLAX
     Indication: Acute myeloid leukaemia
     Route: 048
     Dates: start: 20240326, end: 20240326
  2. VENCLEXTA [Suspect]
     Active Substance: VENETOCLAX
     Indication: Acute myeloid leukaemia
     Route: 048
     Dates: start: 20240327, end: 20240327
  3. VENCLEXTA [Suspect]
     Active Substance: VENETOCLAX
     Indication: Acute myeloid leukaemia
     Route: 048
     Dates: start: 20240328, end: 20240408
  4. VENCLEXTA [Suspect]
     Active Substance: VENETOCLAX
     Indication: Acute myeloid leukaemia
     Route: 048
     Dates: start: 20240508, end: 20240604
  5. VENCLEXTA [Suspect]
     Active Substance: VENETOCLAX
     Indication: Acute myeloid leukaemia
     Route: 048
     Dates: start: 20240611, end: 20240702
  6. VENCLEXTA [Suspect]
     Active Substance: VENETOCLAX
     Indication: Acute myeloid leukaemia
     Route: 048
     Dates: start: 20240726, end: 20240806
  7. VENCLEXTA [Suspect]
     Active Substance: VENETOCLAX
     Indication: Acute myeloid leukaemia
     Route: 048
     Dates: start: 20240810, end: 20240810
  8. VENCLEXTA [Suspect]
     Active Substance: VENETOCLAX
     Indication: Acute myeloid leukaemia
     Route: 048
     Dates: start: 20240813, end: 20240827
  9. VENCLEXTA [Suspect]
     Active Substance: VENETOCLAX
     Indication: Acute myeloid leukaemia
     Route: 048
     Dates: start: 20240906, end: 20240914
  10. Dong a suprax [Concomitant]
     Indication: Infection prophylaxis
     Dosage: FORM STRENGTH: 100 MG
     Route: 048
     Dates: start: 20240813, end: 20240820
  11. Dong a suprax [Concomitant]
     Indication: Infection prophylaxis
     Route: 048
     Dates: start: 20240926
  12. PREDNISOLONE [Concomitant]
     Active Substance: PREDNISOLONE
     Indication: Colitis ulcerative
     Route: 048
     Dates: start: 2022, end: 20240628
  13. MESALAMINE [Concomitant]
     Active Substance: MESALAMINE
     Indication: Colitis ulcerative
     Dosage: ENTERIC COATED?FORM STRENGTH 1200 MG
     Route: 048
     Dates: start: 2022, end: 20240628
  14. AMINO ACIDS, SOURCE UNSPECIFIED [Concomitant]
     Active Substance: AMINO ACIDS, SOURCE UNSPECIFIED
     Indication: Hepatocellular carcinoma
     Dosage: UNIT DOSE: 1 PACK
     Route: 048
     Dates: start: 2023, end: 20240628
  15. DACOGEN [Concomitant]
     Active Substance: DECITABINE
     Indication: Acute myeloid leukaemia
     Route: 042
     Dates: start: 20240326, end: 20240330
  16. DACOGEN [Concomitant]
     Active Substance: DECITABINE
     Indication: Acute myeloid leukaemia
     Route: 042
     Dates: start: 20240508, end: 20240514
  17. DACOGEN [Concomitant]
     Active Substance: DECITABINE
     Indication: Acute myeloid leukaemia
     Route: 042
     Dates: start: 20240611, end: 20240617
  18. DACOGEN [Concomitant]
     Active Substance: DECITABINE
     Indication: Acute myeloid leukaemia
     Route: 042
     Dates: start: 20240726, end: 20240801
  19. DACOGEN [Concomitant]
     Active Substance: DECITABINE
     Indication: Acute myeloid leukaemia
     Route: 042
     Dates: start: 20240906, end: 20240912
  20. ALLOPURINOL [Concomitant]
     Active Substance: ALLOPURINOL
     Indication: Prophylaxis
     Dosage: TIME INTERVAL: 0.33333333 DAYS: FORM STRENGTH 100 MG
     Route: 048
     Dates: start: 20240326, end: 20240402
  21. Citopcin [Concomitant]
     Indication: Infection prophylaxis
     Dosage: FORM STRENGTH: 250 MILLIGRAM
     Route: 048
     Dates: start: 20240326, end: 20240628
  22. Citopcin [Concomitant]
     Indication: Infection prophylaxis
     Dosage: FORM STRENGTH -250 MG
     Route: 048
     Dates: start: 20240820, end: 20240914
  23. Citopcin [Concomitant]
     Indication: Infection prophylaxis
     Dosage: FORM STRENGTH -250 MG
     Route: 048
     Dates: start: 20240716, end: 20240806
  24. LEVOFLOXACIN [Concomitant]
     Active Substance: LEVOFLOXACIN
     Indication: Infection prophylaxis
     Dosage: FORM STRENGTH: 500MG
     Route: 048
     Dates: start: 20240711, end: 20240716
  25. VFEND [Concomitant]
     Active Substance: VORICONAZOLE
     Indication: Antifungal prophylaxis
     Dosage: FORM STRENGTH : 200 MG
     Route: 048
     Dates: start: 20240711, end: 20240812

REACTIONS (4)
  - Neutropenic colitis [Recovered/Resolved]
  - Pneumonia fungal [Recovered/Resolved]
  - Colitis [Recovered/Resolved]
  - Acute myeloid leukaemia refractory [Not Recovered/Not Resolved]

NARRATIVE: CASE EVENT DATE: 20240628
